FAERS Safety Report 14652703 (Version 2)
Quarter: 2018Q4

REPORT INFORMATION
  Report Type: Spontaneous
  Country: US (occurrence: US)
  Receive Date: 20180319
  Receipt Date: 20181010
  Transmission Date: 20190204
  Serious: Yes (Other)
  Sender: FDA-Public Use
  Company Number: US-ASTRAZENECA-2018SE31934

PATIENT
  Age: 23153 Day
  Sex: Male
  Weight: 105.7 kg

DRUGS (15)
  1. NEXIUM [Suspect]
     Active Substance: ESOMEPRAZOLE MAGNESIUM
     Indication: GASTROOESOPHAGEAL REFLUX DISEASE
     Dosage: GENERIC-BID
     Route: 065
     Dates: start: 201503, end: 201603
  2. NEXIUM [Suspect]
     Active Substance: ESOMEPRAZOLE MAGNESIUM
     Indication: GASTROOESOPHAGEAL REFLUX DISEASE
     Route: 048
     Dates: start: 20120215
  3. RAMIPRIL. [Concomitant]
     Active Substance: RAMIPRIL
     Indication: HYPERTENSION
     Route: 065
     Dates: start: 2011
  4. ATENOLOL. [Concomitant]
     Active Substance: ATENOLOL
     Dosage: TAKE 100 MG BY MOUTH 2 (TWO) TIMES DAILY.
     Route: 048
  5. AMBIEN [Concomitant]
     Active Substance: ZOLPIDEM TARTRATE
     Dosage: TAKE 12.5 MG BY MOUTH NIGHTLY
     Route: 048
  6. PRILOSEC OTC [Suspect]
     Active Substance: OMEPRAZOLE MAGNESIUM
     Indication: GASTROOESOPHAGEAL REFLUX DISEASE
     Route: 048
  7. LIPITOR [Concomitant]
     Active Substance: ATORVASTATIN CALCIUM
     Dosage: TAKE 80 MG BY MOUTH DAILY
     Route: 048
  8. NEXIUM [Suspect]
     Active Substance: ESOMEPRAZOLE MAGNESIUM
     Indication: GASTROOESOPHAGEAL REFLUX DISEASE
     Dosage: BID
     Route: 048
     Dates: start: 201202, end: 201501
  9. PEPCID AC (OTC) [Concomitant]
     Route: 065
  10. ZANTAC [Concomitant]
     Active Substance: RANITIDINE HYDROCHLORIDE
     Dosage: TAKE 150 MG BY MOUTH 2 (TWO) TIMES DAILY
     Route: 048
     Dates: start: 201605, end: 201612
  11. ASPIRIN. [Concomitant]
     Active Substance: ASPIRIN
     Dosage: TAKE 0.5 TABLETS (162.5 MG TOTAL) BY MOUTH DAILY.
     Route: 048
  12. LANSOPRAZOLE. [Suspect]
     Active Substance: LANSOPRAZOLE
     Indication: GASTROOESOPHAGEAL REFLUX DISEASE
     Route: 065
     Dates: start: 2014, end: 2015
  13. TRICOR [Concomitant]
     Active Substance: FENOFIBRATE
     Dosage: TAKE 145 MG BY MOUTH DAILY
     Route: 048
  14. GLUCOPHAGE [Concomitant]
     Active Substance: METFORMIN HYDROCHLORIDE
     Dosage: TAKE 1,000 MG BY MOUTH 2 (TWO) TIMES DAILY.
     Route: 048
  15. ALTACE [Concomitant]
     Active Substance: RAMIPRIL
     Dosage: TAKE 1 CAPSULE (5 MG TOTAL) BY MOUTH 2 (TWO) TIMES DAILY.
     Route: 048

REACTIONS (2)
  - Chronic kidney disease [Not Recovered/Not Resolved]
  - Renal failure [Unknown]

NARRATIVE: CASE EVENT DATE: 20160310
